FAERS Safety Report 4563294-8 (Version None)
Quarter: 2005Q1

REPORT INFORMATION
  Report Type: 
  Country: None (occurrence: None)
  Receive Date: 20050128
  Receipt Date: 20031204
  Transmission Date: 20050727
  Serious: No
  Sender: FDA-Public Use
  Company Number: US-GLAXOSMITHKLINE-A0442011A

PATIENT
  Age: 66 Year
  Sex: Male
  Weight: 77.3 kg

DRUGS (5)
  1. WELLBUTRIN [Suspect]
     Dosage: 100MG TWICE PER DAY
     Route: 048
     Dates: start: 20030101
  2. WELLBUTRIN XL [Suspect]
     Dosage: 300MG PER DAY
     Route: 048
  3. VASOTEC [Concomitant]
     Dosage: 20MG TWICE PER DAY
     Route: 048
  4. HYDROCHLOROTHIAZIDE [Concomitant]
     Dosage: 25MG PER DAY
     Route: 048
  5. TENORMIN [Concomitant]
     Dosage: 50MG TWICE PER DAY
     Route: 048

REACTIONS (3)
  - DIPLOPIA [None]
  - DIZZINESS [None]
  - FEELING JITTERY [None]
